FAERS Safety Report 20190422 (Version 1)
Quarter: 2021Q4

REPORT INFORMATION
  Report Type: Spontaneous
  Country: None (occurrence: US)
  Receive Date: 20211215
  Receipt Date: 20211215
  Transmission Date: 20220303
  Serious: No
  Sender: FDA-Public Use
  Company Number: US-Jiangsu Hengrui Medicine Co., Ltd.-2123083

PATIENT
  Age: 77 Year
  Sex: Female

DRUGS (5)
  1. DOCETAXEL [Suspect]
     Active Substance: DOCETAXEL
     Indication: Invasive ductal breast carcinoma
     Dates: end: 20130327
  2. CYCLOPHOSPHAMIDE [Suspect]
     Active Substance: CYCLOPHOSPHAMIDE
     Dates: start: 20130116, end: 20130327
  3. LETROZOLE [Suspect]
     Active Substance: LETROZOLE
     Dates: start: 20120812, end: 20201007
  4. PALBOCICLIB [Suspect]
     Active Substance: PALBOCICLIB
  5. PAROXETINE [Concomitant]
     Active Substance: PAROXETINE
     Dates: end: 20190619

REACTIONS (7)
  - Anaemia [Unknown]
  - Diarrhoea [Unknown]
  - Rash [Unknown]
  - Musculoskeletal chest pain [Unknown]
  - Neoplasm progression [Unknown]
  - Joint stiffness [Unknown]
  - Osteoporosis [Recovering/Resolving]

NARRATIVE: CASE EVENT DATE: 20120912
